FAERS Safety Report 18888222 (Version 1)
Quarter: 2021Q1

REPORT INFORMATION
  Report Type: Spontaneous
  Country: US (occurrence: US)
  Receive Date: 20210213
  Receipt Date: 20210213
  Transmission Date: 20210420
  Serious: No
  Sender: FDA-Public Use
  Company Number: US-009507513-2101USA010335

PATIENT
  Sex: Female

DRUGS (4)
  1. STROMECTOL [Suspect]
     Active Substance: IVERMECTIN
     Dosage: UNK, QW
     Route: 048
  2. STROMECTOL [Suspect]
     Active Substance: IVERMECTIN
     Dosage: UNK
     Route: 048
     Dates: start: 20201231, end: 20201231
  3. STROMECTOL [Suspect]
     Active Substance: IVERMECTIN
     Indication: COVID-19 PROPHYLAXIS
     Dosage: UNK
     Route: 048
     Dates: start: 20201223, end: 20201223
  4. STROMECTOL [Suspect]
     Active Substance: IVERMECTIN
     Dosage: UNK
     Route: 048
     Dates: start: 20201225, end: 20201225

REACTIONS (2)
  - No adverse event [Unknown]
  - Off label use [Unknown]

NARRATIVE: CASE EVENT DATE: 20201223
